FAERS Safety Report 7163530-8 (Version None)
Quarter: 2010Q4

REPORT INFORMATION
  Report Type: 
  Country: None (occurrence: None)
  Receive Date: 20101215
  Receipt Date: 20100504
  Transmission Date: 20110411
  Serious: Yes (Other)
  Sender: FDA-Public Use
  Company Number: US-PFIZER INC-2010057033

PATIENT
  Sex: Female
  Weight: 99.77 kg

DRUGS (21)
  1. LYRICA [Interacting]
     Indication: NEUROPATHY PERIPHERAL
     Dosage: 400 MG, 1X/DAY
     Dates: start: 20080101
  2. LYRICA [Interacting]
     Dosage: 100 MG, 2X/DAY
     Dates: start: 20100101
  3. DILANTIN-125 [Interacting]
     Indication: CONVULSION
     Dosage: 150 MG, 2X/DAY
     Dates: start: 20070101, end: 20090101
  4. COPAXONE [Suspect]
     Indication: MULTIPLE SCLEROSIS
     Dosage: UNK
     Dates: start: 20020101, end: 20090101
  5. ARMOUR THYROID [Concomitant]
     Indication: THYROID DISORDER
     Dosage: 120 MG, UNK
  6. KADIAN [Concomitant]
     Dosage: 200 MG, 2X/DAY
  7. FENTANYL [Concomitant]
     Dosage: UNK
  8. XANAX XR [Concomitant]
     Dosage: 3 MG, 2X/DAY
  9. OXYGEN [Concomitant]
  10. VYTORIN [Concomitant]
     Dosage: 10/20 MG
  11. NEXIUM [Concomitant]
     Dosage: 40 MG, UNK
  12. BACLOFEN [Concomitant]
     Dosage: UNK
  13. MAXALT [Concomitant]
     Indication: MIGRAINE
     Dosage: FREQUENCY: AS NEEDED,
  14. ZOFRAN [Concomitant]
     Indication: NAUSEA
     Dosage: FREQUENCY: AS NEEDED,
  15. ZANAFLEX [Concomitant]
     Indication: MUSCLE SPASMS
     Dosage: 4 MG, AS NEEDED
  16. URECHOLINE [Concomitant]
     Indication: BLADDER DISORDER
     Dosage: UNK
  17. BENTYL [Concomitant]
     Dosage: 20 MG, AS NEEDED
  18. OXYBUTYNIN [Concomitant]
     Dosage: 5 MG, UNK
  19. PROAIR HFA [Concomitant]
     Indication: ASTHMA
     Dosage: UNK
  20. RELISTOR [Concomitant]
     Dosage: UNK
  21. MIRALAX [Concomitant]
     Indication: CONSTIPATION
     Dosage: UNK

REACTIONS (5)
  - ANGINA PECTORIS [None]
  - ARTHRITIS [None]
  - HEPATIC ENZYME INCREASED [None]
  - NARCOLEPSY [None]
  - OEDEMA PERIPHERAL [None]
